FAERS Safety Report 18576506 (Version 3)
Quarter: 2021Q1

REPORT INFORMATION
  Report Type: Report from Study
  Country: NL (occurrence: NL)
  Receive Date: 20201203
  Receipt Date: 20210120
  Transmission Date: 20210419
  Serious: Yes (Death, Other)
  Sender: FDA-Public Use
  Company Number: NL-MYLANLABS-2020M1098558

PATIENT
  Sex: Female

DRUGS (2)
  1. GLATIRAMEERACETAAT MYLAN 40 MG/ML [Suspect]
     Active Substance: GLATIRAMER ACETATE
     Indication: MULTIPLE SCLEROSIS
  2. GLATIRAMEERACETAAT MYLAN 40 MG/ML [Suspect]
     Active Substance: GLATIRAMER ACETATE
     Indication: RELAPSING MULTIPLE SCLEROSIS
     Dosage: 40 MILLIGRAM, 3XW
     Route: 058
     Dates: start: 202007, end: 202012

REACTIONS (4)
  - Metastases to liver [Fatal]
  - Breast cancer metastatic [Fatal]
  - Dysphagia [Not Recovered/Not Resolved]
  - Metastases to bone [Fatal]

NARRATIVE: CASE EVENT DATE: 202011
